FAERS Safety Report 12212448 (Version 2)
Quarter: 2016Q2

REPORT INFORMATION
  Report Type: Spontaneous
  Country: DE (occurrence: DE)
  Receive Date: 20160326
  Receipt Date: 20160426
  Transmission Date: 20160815
  Serious: Yes (Other)
  Sender: FDA-Public Use
  Company Number: DE-BRISTOL-MYERS SQUIBB COMPANY-BMS-2016-020929

PATIENT
  Sex: Male
  Weight: 64 kg

DRUGS (3)
  1. CLEXANE [Concomitant]
     Active Substance: ENOXAPARIN SODIUM
     Indication: ATRIAL FIBRILLATION
     Route: 058
  2. NIVOLUMAB [Suspect]
     Active Substance: NIVOLUMAB
     Indication: NON-SMALL CELL LUNG CANCER
     Dosage: 196.5 MG, UNK
     Route: 042
     Dates: start: 20150831, end: 20160204
  3. SPIRIVA [Concomitant]
     Active Substance: TIOTROPIUM BROMIDE MONOHYDRATE
     Indication: CHRONIC OBSTRUCTIVE PULMONARY DISEASE
     Route: 048

REACTIONS (2)
  - Malignant neoplasm progression [Unknown]
  - Rheumatoid arthritis [Recovered/Resolved]
